FAERS Safety Report 7768644-7 (Version None)
Quarter: 2011Q3

REPORT INFORMATION
  Report Type: 
  Country: None (occurrence: None)
  Receive Date: 20110922
  Receipt Date: 20110322
  Transmission Date: 20111222
  Serious: Yes (Hospitalization)
  Sender: FDA-Public Use
  Company Number: US-ASTRAZENECA-2011SE16089

PATIENT
  Age: 19 Year
  Sex: Male
  Weight: 95.3 kg

DRUGS (5)
  1. COGENTIN [Concomitant]
     Indication: ILL-DEFINED DISORDER
  2. VALIUM [Concomitant]
     Indication: SLEEP DISORDER
  3. HALDOL [Concomitant]
  4. SEROQUEL [Suspect]
     Indication: ABNORMAL BEHAVIOUR
     Route: 048
     Dates: start: 20101101
  5. KEPPRA [Concomitant]
     Indication: CONVULSION

REACTIONS (2)
  - OVERDOSE [None]
  - SUICIDE ATTEMPT [None]
